FAERS Safety Report 5503452-9 (Version None)
Quarter: 2007Q4

REPORT INFORMATION
  Report Type: 
  Country: None (occurrence: None)
  Receive Date: 20071031
  Receipt Date: 20071019
  Transmission Date: 20080405
  Serious: Yes (Other)
  Sender: FDA-Public Use
  Company Number: US-PFIZER INC-2007089752

PATIENT
  Sex: Male
  Weight: 115.7 kg

DRUGS (6)
  1. CHANTIX [Suspect]
     Indication: SMOKING CESSATION THERAPY
     Dates: start: 20070701, end: 20070901
  2. THEOPHYLLINE [Concomitant]
  3. DOXAZOSIN MESYLATE [Concomitant]
  4. LISINOPRIL AND HYDROCHLOROTHIAZIDE [Concomitant]
  5. VYTORIN [Concomitant]
  6. ASCORBIC ACID [Concomitant]

REACTIONS (1)
  - ROAD TRAFFIC ACCIDENT [None]
